FAERS Safety Report 19995146 (Version 1)
Quarter: 2021Q4

REPORT INFORMATION
  Report Type: Spontaneous
  Country: QZ (occurrence: QZ)
  Receive Date: 20211026
  Receipt Date: 20211026
  Transmission Date: 20220303
  Serious: Yes (unspecified)
  Sender: FDA-Public Use
  Company Number: None

PATIENT
  Age: 53 Year
  Sex: Female
  Weight: 38.6 kg

DRUGS (3)
  1. CARBOPLATIN [Suspect]
     Active Substance: CARBOPLATIN
     Indication: Cervix carcinoma
     Dosage: OTHER FREQUENCY:IV INFUSION;
     Route: 041
     Dates: start: 20211022, end: 20211022
  2. diphenhydramine 25mg IV [Concomitant]
     Dates: start: 20211022, end: 20211022
  3. Hydrocortisone 100 mg IV [Concomitant]
     Dates: start: 20211022, end: 20211022

REACTIONS (3)
  - Ear pruritus [None]
  - Infusion related reaction [None]
  - Feeling hot [None]

NARRATIVE: CASE EVENT DATE: 20211022
